FAERS Safety Report 9106509 (Version 2)
Quarter: 2013Q1

REPORT INFORMATION
  Report Type: Spontaneous
  Country: US (occurrence: US)
  Receive Date: 20130221
  Receipt Date: 20130325
  Transmission Date: 20140127
  Serious: No
  Sender: FDA-Public Use
  Company Number: US-PFIZER INC-2013065640

PATIENT
  Age: 48 Year
  Sex: Female
  Weight: 63 kg

DRUGS (6)
  1. CHANTIX [Suspect]
     Indication: SMOKING CESSATION THERAPY
     Dosage: 0.5 MG, 1X/DAY
     Route: 048
     Dates: start: 20121208
  2. CHANTIX [Suspect]
     Dosage: UNK
     Route: 048
     Dates: end: 20130127
  3. CHANTIX [Suspect]
     Dosage: 1 MG, 1X/DAY
     Route: 048
     Dates: start: 20130208, end: 20130215
  4. SERTRALINE [Concomitant]
     Indication: DEPRESSION
     Dosage: 100 MG, 1X/DAY
     Route: 048
  5. NADOLOL [Concomitant]
     Indication: CARDIAC DISORDER
     Dosage: 20 MG, DAILY
  6. CLARITIN-D [Concomitant]
     Indication: HYPERSENSITIVITY
     Dosage: UNK, 2X/DAY

REACTIONS (4)
  - Hostility [Not Recovered/Not Resolved]
  - Agitation [Recovering/Resolving]
  - Anxiety [Recovering/Resolving]
  - Drug withdrawal syndrome [Recovering/Resolving]
